FAERS Safety Report 5826884-8 (Version None)
Quarter: 2008Q3

REPORT INFORMATION
  Report Type: 
  Country: None (occurrence: None)
  Receive Date: 20080725
  Receipt Date: 20080718
  Transmission Date: 20090109
  Serious: Yes (Other)
  Sender: FDA-Public Use
  Company Number: 2008JP003357

PATIENT
  Age: 58 Year
  Sex: Female

DRUGS (1)
  1. FUNGUARD (MICAFUNGIN) INJECTION [Suspect]
     Dosage: IV DRIP
     Route: 041

REACTIONS (1)
  - STEVENS-JOHNSON SYNDROME [None]
